FAERS Safety Report 5871430-6 (Version None)
Quarter: 2008Q3

REPORT INFORMATION
  Report Type: 
  Country: None (occurrence: None)
  Receive Date: 20080905
  Receipt Date: 20080828
  Transmission Date: 20090109
  Serious: Yes (Other)
  Sender: FDA-Public Use
  Company Number: PHHY2008DE17693

PATIENT
  Sex: Male

DRUGS (5)
  1. RASILEZ [Suspect]
     Indication: HYPERTENSION
     Dosage: 300 MG/DAY
     Route: 048
     Dates: start: 20080421, end: 20080603
  2. BISOPROLOL FUMARATE [Concomitant]
  3. AMLODIPINE [Concomitant]
  4. FUROSEMID [Concomitant]
  5. OMEPRAZOLE [Concomitant]

REACTIONS (2)
  - BLOOD CREATINE PHOSPHOKINASE INCREASED [None]
  - MYALGIA [None]
